FAERS Safety Report 9171337 (Version 1)
Quarter: 2013Q1

REPORT INFORMATION
  Report Type: Spontaneous
  Country: BE (occurrence: BE)
  Receive Date: 20130319
  Receipt Date: 20130319
  Transmission Date: 20140127
  Serious: Yes (Death)
  Sender: FDA-Public Use
  Company Number: BE-B.I. PHARMACEUTICALS,INC./RIDGEFIELD-2013-BL-00134BL

PATIENT
  Age: 77 Year
  Sex: Female
  Weight: 100 kg

DRUGS (8)
  1. PRADAXA [Suspect]
     Indication: ATRIAL FIBRILLATION
     Dosage: 220 MG
     Route: 048
     Dates: start: 20130220, end: 20130310
  2. COZAAR [Concomitant]
     Indication: CARDIAC FAILURE CONGESTIVE
     Dosage: 100 MG
     Route: 048
     Dates: start: 20130220, end: 20130310
  3. ALDACTONE [Concomitant]
     Indication: CARDIAC FAILURE CONGESTIVE
     Dosage: 50 MG
     Route: 048
     Dates: start: 20130220, end: 20130310
  4. LASIX [Concomitant]
     Indication: CARDIAC FAILURE CONGESTIVE
     Dosage: 40 MG
     Route: 048
     Dates: start: 20130220, end: 20130310
  5. GLUCOPHAGE [Concomitant]
     Indication: TYPE 2 DIABETES MELLITUS
     Dosage: 1700 MG
     Route: 048
     Dates: end: 20130310
  6. CORDARONE [Concomitant]
  7. EMCONCOR [Concomitant]
  8. AMLOR [Concomitant]

REACTIONS (5)
  - Melaena [Fatal]
  - Gingival bleeding [Fatal]
  - Ecchymosis [Fatal]
  - Pericardial haemorrhage [Fatal]
  - Renal failure [Unknown]
